FAERS Safety Report 10596404 (Version 1)
Quarter: 2014Q4

REPORT INFORMATION
  Report Type: Spontaneous
  Country: PR (occurrence: PR)
  Receive Date: 20141120
  Receipt Date: 20141120
  Transmission Date: 20150529
  Serious: Yes (Other)
  Sender: FDA-Public Use
  Company Number: PR-BAYER-2014-170803

PATIENT
  Age: 40 Year
  Sex: Female

DRUGS (1)
  1. GADAVIST [Suspect]
     Active Substance: GADOBUTROL
     Indication: NUCLEAR MAGNETIC RESONANCE IMAGING BREAST
     Dosage: 10 ML, ONCE
     Dates: start: 20141112, end: 20141112

REACTIONS (2)
  - Urticaria [None]
  - Rash generalised [None]

NARRATIVE: CASE EVENT DATE: 20141112
